FAERS Safety Report 7638550-7 (Version None)
Quarter: 2011Q3

REPORT INFORMATION
  Report Type: 
  Country: None (occurrence: None)
  Receive Date: 20110727
  Receipt Date: 20110718
  Transmission Date: 20111222
  Serious: Yes (Death, Other)
  Sender: FDA-Public Use
  Company Number: PHHY2011PT64659

PATIENT
  Age: 40 Year
  Sex: Female

DRUGS (6)
  1. TRASTUZUMAB [Suspect]
     Indication: BREAST CANCER
     Dosage: 25 MG, UNK
     Dates: end: 20070901
  2. TRASTUZUMAB [Suspect]
     Dosage: UNK
     Dates: start: 20081101
  3. CORTICOSTEROIDS [Concomitant]
     Route: 048
  4. TRASTUZUMAB [Suspect]
     Dosage: UNK
     Dates: start: 20090701
  5. TRASTUZUMAB [Suspect]
     Dosage: UNK
     Dates: start: 20090101
  6. LETROZOLE [Suspect]
     Indication: BREAST CANCER
     Dosage: UNK

REACTIONS (10)
  - LIMB DISCOMFORT [None]
  - EJECTION FRACTION DECREASED [None]
  - METASTASES TO LUNG [None]
  - MENINGITIS LISTERIA [None]
  - HEADACHE [None]
  - METASTASES TO MENINGES [None]
  - METASTASES TO LIVER [None]
  - GAIT DISTURBANCE [None]
  - METASTASES TO CENTRAL NERVOUS SYSTEM [None]
  - MUSCULOSKELETAL STIFFNESS [None]
